FAERS Safety Report 8509448-7 (Version None)
Quarter: 2012Q3

REPORT INFORMATION
  Report Type: 
  Country: None (occurrence: None)
  Receive Date: 20120713
  Receipt Date: 20120706
  Transmission Date: 20120928
  Serious: Yes (Hospitalization, Other)
  Sender: FDA-Public Use
  Company Number: US-ASTRAZENECA-2012SE05195

PATIENT
  Age: 70 Year
  Sex: Male

DRUGS (3)
  1. NEXIUM [Suspect]
     Route: 048
  2. STEROIDS [Concomitant]
  3. CRESTOR [Suspect]
     Route: 048

REACTIONS (4)
  - JOINT SWELLING [None]
  - GOUT [None]
  - ARTERIAL THROMBOSIS [None]
  - GAIT DISTURBANCE [None]
